FAERS Safety Report 18295322 (Version 2)
Quarter: 2020Q3

REPORT INFORMATION
  Report Type: Spontaneous
  Country: US (occurrence: US)
  Receive Date: 20200922
  Receipt Date: 20200924
  Transmission Date: 20201103
  Serious: Yes (Hospitalization)
  Sender: FDA-Public Use
  Company Number: US-ROCHE-2682352

PATIENT
  Age: 77 Year
  Sex: Male

DRUGS (8)
  1. CALCIUM [Concomitant]
     Active Substance: CALCIUM
  2. DICLOFENAC [Concomitant]
     Active Substance: DICLOFENAC
  3. ASPIRIN. [Concomitant]
     Active Substance: ASPIRIN
  4. ACTEMRA [Suspect]
     Active Substance: TOCILIZUMAB
     Indication: RHEUMATOID ARTHRITIS
     Dosage: ONGOING: YES
     Route: 042
     Dates: start: 20150813
  5. AMOXICILLIN. [Concomitant]
     Active Substance: AMOXICILLIN
  6. TRAMADOL. [Concomitant]
     Active Substance: TRAMADOL
  7. ATORVASTATIN [Concomitant]
     Active Substance: ATORVASTATIN
  8. CHLORTHALIDONE. [Concomitant]
     Active Substance: CHLORTHALIDONE

REACTIONS (2)
  - Drug ineffective [Unknown]
  - Unevaluable event [Unknown]

NARRATIVE: CASE EVENT DATE: 202009
